FAERS Safety Report 17521395 (Version 1)
Quarter: 2020Q1

REPORT INFORMATION
  Report Type: Spontaneous
  Country: US (occurrence: US)
  Receive Date: 20200310
  Receipt Date: 20200310
  Transmission Date: 20200409
  Serious: Yes (Life-Threatening, Hospitalization)
  Sender: FDA-Public Use
  Company Number: None

PATIENT
  Age: 72 Year
  Sex: Female
  Weight: 81.9 kg

DRUGS (8)
  1. CPAP [Concomitant]
     Active Substance: DEVICE
  2. VITAMINS [Concomitant]
     Active Substance: VITAMINS
  3. PRAVASTATIN. [Concomitant]
     Active Substance: PRAVASTATIN
  4. LISINOPRIL. [Suspect]
     Active Substance: LISINOPRIL
     Indication: HYPERTENSION
     Dosage: ?          QUANTITY:1 TABLET(S);?
     Route: 048
     Dates: start: 20120101, end: 20191007
  5. OMEPRAZOLE. [Concomitant]
     Active Substance: OMEPRAZOLE
  6. 81MG ASPIRIN [Concomitant]
  7. VITAMIN D3 [Concomitant]
     Active Substance: CHOLECALCIFEROL
  8. LEVOTHYROXIN [Concomitant]
     Active Substance: LEVOTHYROXINE

REACTIONS (4)
  - Swelling face [None]
  - Cough [None]
  - Dyspnoea [None]
  - Swollen tongue [None]

NARRATIVE: CASE EVENT DATE: 20191007
